FAERS Safety Report 19841133 (Version 1)
Quarter: 2021Q3

REPORT INFORMATION
  Report Type: Other
  Country: US (occurrence: US)
  Receive Date: 20210916
  Receipt Date: 20210916
  Transmission Date: 20211014
  Serious: No
  Sender: FDA-Public Use
  Company Number: US-LEADIANT BIOSCIENCES INC-2021STPI000064

PATIENT
  Sex: Male

DRUGS (1)
  1. MATULANE [Suspect]
     Active Substance: PROCARBAZINE HYDROCHLORIDE
     Indication: HODGKIN^S DISEASE
     Dosage: 50 MG, TAKE 4 CAPS, ONCE DAILY ON DAYS 1?10 OF A 28?DAY CYCLE
     Route: 048
     Dates: start: 20201209

REACTIONS (1)
  - Fatigue [Unknown]
